FAERS Safety Report 15024935 (Version 2)
Quarter: 2018Q4

REPORT INFORMATION
  Report Type: Spontaneous
  Country: CZ (occurrence: CZ)
  Receive Date: 20180618
  Receipt Date: 20181001
  Transmission Date: 20190204
  Serious: Yes (Other)
  Sender: FDA-Public Use
  Company Number: CZ-MYLANLABS-2018M1040800

PATIENT
  Age: 60 Year
  Sex: Male

DRUGS (2)
  1. ROSUVASTATIN. [Suspect]
     Active Substance: ROSUVASTATIN
     Indication: PRODUCT USED FOR UNKNOWN INDICATION
     Dosage: 20 MG, QD
     Route: 065
  2. PERINDOPRIL [Concomitant]
     Active Substance: PERINDOPRIL
     Indication: PRODUCT USED FOR UNKNOWN INDICATION
     Dosage: UNK
     Route: 065

REACTIONS (5)
  - Polyneuropathy [Recovered/Resolved]
  - Muscular weakness [Recovered/Resolved]
  - Paraesthesia [Recovered/Resolved]
  - Burning sensation [Recovered/Resolved]
  - Acute motor-sensory axonal neuropathy [Recovered/Resolved]
